FAERS Safety Report 9221658 (Version 2)
Quarter: 2013Q2

REPORT INFORMATION
  Report Type: Spontaneous
  Country: ES (occurrence: None)
  Receive Date: 20130408
  Receipt Date: 20130507
  Transmission Date: 20140414
  Serious: Yes (Hospitalization)
  Sender: FDA-Public Use
  Company Number: 2013MZ000036

PATIENT
  Age: 73 Year
  Sex: Female

DRUGS (2)
  1. XEOMIN [Suspect]
     Indication: PRODUCT USED FOR UNKNOWN INDICATION
     Dosage: 1) 30 U; X1; IV?2) 70 U; X1; IM
     Route: 042
     Dates: start: 20130319, end: 20130319
  2. XEOMIN [Suspect]
     Indication: MYALGIA
     Dosage: 1) 30 U; X1; IV?2) 70 U; X1; IM
     Route: 042
     Dates: start: 20130319, end: 20130319

REACTIONS (2)
  - Wrong drug administered [None]
  - Incorrect route of drug administration [None]
